FAERS Safety Report 6726137-X (Version None)
Quarter: 2010Q2

REPORT INFORMATION
  Report Type: 
  Country: None (occurrence: None)
  Receive Date: 20100512
  Receipt Date: 20100507
  Transmission Date: 20101027
  Serious: Yes (Other)
  Sender: FDA-Public Use
  Company Number: 2010S1000104-003

PATIENT
  Age: 52 Year
  Sex: Female

DRUGS (2)
  1. PITAVASTATIN CALCIUM [Suspect]
     Indication: HYPERLIPIDAEMIA
     Dosage: 2MG, PO
     Route: 048
     Dates: start: 20091201, end: 20100126
  2. AZELNIDIPINE [Concomitant]

REACTIONS (2)
  - DIARRHOEA [None]
  - RHABDOMYOLYSIS [None]
